APPROVED DRUG PRODUCT: FEMSTAT
Active Ingredient: BUTOCONAZOLE NITRATE
Strength: 2%
Dosage Form/Route: CREAM;VAGINAL
Application: N019215 | Product #001
Applicant: ROCHE PALO ALTO LLC
Approved: Nov 25, 1985 | RLD: No | RS: No | Type: DISCN